FAERS Safety Report 6400527-7 (Version None)
Quarter: 2009Q4

REPORT INFORMATION
  Report Type: 
  Country: None (occurrence: None)
  Receive Date: 20091014
  Receipt Date: 20091007
  Transmission Date: 20100525
  Serious: Yes (Hospitalization)
  Sender: FDA-Public Use
  Company Number: FR-PFIZER INC-2009279364

PATIENT
  Age: 89 Year

DRUGS (8)
  1. ZOLOFT [Suspect]
     Dosage: 50 MG, 1X/DAY
     Route: 048
     Dates: end: 20090916
  2. HYDROXYZINE HCL [Suspect]
     Dosage: UNK
     Route: 048
     Dates: end: 20090916
  3. AMLOR [Concomitant]
     Dosage: UNK
  4. DIFFU K [Concomitant]
     Dosage: UNK
  5. KARDEGIC [Concomitant]
     Dosage: UNK
  6. LOVENOX [Concomitant]
     Dosage: UNK
  7. NEXIUM [Concomitant]
     Dosage: UNK
  8. REMINYL [Concomitant]
     Dosage: UNK

REACTIONS (2)
  - AGGRESSION [None]
  - CONFUSIONAL STATE [None]
